FAERS Safety Report 23627263 (Version 2)
Quarter: 2024Q2

REPORT INFORMATION
  Report Type: Report from Study
  Country: US (occurrence: US)
  Receive Date: 20240313
  Receipt Date: 20240606
  Transmission Date: 20240715
  Serious: No
  Sender: FDA-Public Use
  Company Number: US-SPRINGWORKS THERAPEUTICS-SW-001331

PATIENT
  Age: 48 Year
  Sex: Female
  Weight: 90.703 kg

DRUGS (2)
  1. NIROGACESTAT [Suspect]
     Active Substance: NIROGACESTAT
     Indication: Desmoid tumour
     Dosage: 100 MILLIGRAM, BID
     Route: 048
     Dates: start: 20240212, end: 20240422
  2. NIROGACESTAT [Suspect]
     Active Substance: NIROGACESTAT
     Dosage: 100 MILLIGRAM, BID
     Route: 048

REACTIONS (22)
  - Paraesthesia [Recovering/Resolving]
  - Decreased appetite [Unknown]
  - Laboratory test abnormal [Unknown]
  - Pubic pain [Unknown]
  - Oropharyngeal pain [Unknown]
  - Nasopharyngitis [Unknown]
  - Insomnia [Unknown]
  - Eyelid skin dryness [Unknown]
  - Malaise [Unknown]
  - Constipation [Unknown]
  - Abdominal discomfort [Unknown]
  - Hot flush [Not Recovered/Not Resolved]
  - Hepatic steatosis [Unknown]
  - Dyspnoea exertional [Unknown]
  - Fatigue [Not Recovered/Not Resolved]
  - Headache [Unknown]
  - Diarrhoea [Not Recovered/Not Resolved]
  - Nausea [Unknown]
  - Rash [Unknown]
  - Blood phosphorus decreased [Not Recovered/Not Resolved]
  - Therapy cessation [Unknown]
  - Insurance issue [Unknown]

NARRATIVE: CASE EVENT DATE: 20240220
